FAERS Safety Report 6371712-8 (Version None)
Quarter: 2009Q3

REPORT INFORMATION
  Report Type: 
  Country: None (occurrence: None)
  Receive Date: 20090918
  Receipt Date: 20090904
  Transmission Date: 20100115
  Serious: Yes (Other)
  Sender: FDA-Public Use
  Company Number: 8034107

PATIENT
  Sex: Female

DRUGS (2)
  1. XYZAL [Suspect]
     Dosage: 5 MG /D PO
     Route: 048
     Dates: start: 20080617, end: 20080624
  2. ATARAX [Suspect]
     Indication: INSOMNIA
     Dosage: 25 MG /D PO
     Route: 048
     Dates: end: 20080624

REACTIONS (3)
  - ABORTION SPONTANEOUS [None]
  - DRUG EXPOSURE DURING PREGNANCY [None]
  - PREGNANCY [None]
